FAERS Safety Report 9184067 (Version 1)
Quarter: 2013Q1

REPORT INFORMATION
  Report Type: Spontaneous
  Country: US (occurrence: US)
  Receive Date: 20130322
  Receipt Date: 20130322
  Transmission Date: 20140127
  Serious: Yes (Other)
  Sender: FDA-Public Use
  Company Number: US-BRISTOL-MYERS SQUIBB COMPANY-16722456

PATIENT
  Age: 62 Year
  Sex: Male
  Weight: 79.36 kg

DRUGS (1)
  1. ERBITUX [Suspect]
     Indication: COLON CANCER
     Dosage: LAST DOSE: FRIDAY
     Dates: start: 201205, end: 201206

REACTIONS (5)
  - Malignant neoplasm progression [Unknown]
  - Skin exfoliation [Recovering/Resolving]
  - Pruritus [Recovering/Resolving]
  - Rash [Recovering/Resolving]
  - Skin fissures [Recovering/Resolving]
